FAERS Safety Report 18041264 (Version 1)
Quarter: 2020Q3

REPORT INFORMATION
  Report Type: Spontaneous
  Country: US (occurrence: US)
  Receive Date: 20200719
  Receipt Date: 20200719
  Transmission Date: 20201103
  Serious: No
  Sender: FDA-Public Use
  Company Number: US-ELI_LILLY_AND_COMPANY-US202007007145

PATIENT
  Sex: Female

DRUGS (2)
  1. HUMALOG [Suspect]
     Active Substance: INSULIN LISPRO
     Indication: DIABETIC KETOACIDOSIS
     Dosage: 5 UNITS BEFORE EVERY MEAL
     Route: 058
  2. HUMALOG MIX50/50 [Suspect]
     Active Substance: INSULIN LISPRO
     Indication: DIABETIC KETOACIDOSIS
     Dosage: 5 UNITS BEFORE EVERY MEAL
     Route: 058

REACTIONS (1)
  - Product dispensing error [Unknown]
